FAERS Safety Report 19249013 (Version 1)
Quarter: 2021Q2

REPORT INFORMATION
  Report Type: Spontaneous
  Country: NL (occurrence: NL)
  Receive Date: 20210512
  Receipt Date: 20210512
  Transmission Date: 20210717
  Serious: Yes (Other)
  Sender: FDA-Public Use
  Company Number: NL-ACCORD-224723

PATIENT
  Age: 15 Year
  Sex: Female

DRUGS (2)
  1. BECLOMETASONE/FORMOTEROL [Concomitant]
     Dosage: 200/6  (MICROGRAM PER DOSE)
  2. METHOTREXATE. [Suspect]
     Active Substance: METHOTREXATE
     Indication: DERMATITIS ATOPIC
     Dosage: STRENGTH:2.5 MG?1 X PER WEEK 20MG IS EQUAL TO 8 TABLETS
     Dates: start: 20200520

REACTIONS (2)
  - Off label use [Unknown]
  - Cystitis haemorrhagic [Not Recovered/Not Resolved]

NARRATIVE: CASE EVENT DATE: 20201116
